FAERS Safety Report 9723289 (Version 2)
Quarter: 2014Q1

REPORT INFORMATION
  Report Type: Other
  Country: US (occurrence: US)
  Receive Date: 20131202
  Receipt Date: 20140220
  Transmission Date: 20141002
  Serious: Yes (Hospitalization)
  Sender: FDA-Public Use
  Company Number: US-NAPPMUNDI-DEU-2013-0013008

PATIENT
  Age: 56 Year
  Sex: Male

DRUGS (2)
  1. MORPHINE SULFATE (SIMILAR TO NDA 19-516) [Suspect]
     Indication: PAIN
     Dosage: 30 MG, BID
     Route: 048
  2. MORPHINE SULFATE (SIMILAR TO NDA 19-516) [Suspect]
     Indication: FIBROMYALGIA

REACTIONS (1)
  - Pancreatitis acute [Recovered/Resolved]
